FAERS Safety Report 5425136-8 (Version None)
Quarter: 2007Q3

REPORT INFORMATION
  Report Type: 
  Country: None (occurrence: None)
  Receive Date: 20070824
  Receipt Date: 20070814
  Transmission Date: 20080115
  Serious: Yes (Other)
  Sender: FDA-Public Use
  Company Number: US-ROCHE-511717

PATIENT
  Sex: Male

DRUGS (1)
  1. FUZEON [Suspect]
     Dosage: THE PATIENT WAS USING THE ENFUVIRTIDE BIOJECTOR.
     Route: 065

REACTIONS (2)
  - BACK DISORDER [None]
  - UNEVALUABLE EVENT [None]
